FAERS Safety Report 4902238-3 (Version None)
Quarter: 2006Q1

REPORT INFORMATION
  Report Type: 
  Country: None (occurrence: None)
  Receive Date: 20060202
  Receipt Date: 20060120
  Transmission Date: 20060701
  Serious: Yes (Other)
  Sender: FDA-Public Use
  Company Number: 2006012428

PATIENT
  Age: 46 Year
  Sex: Male
  Weight: 75 kg

DRUGS (3)
  1. FLUCONAZOLE [Suspect]
     Indication: ANTIFUNGAL PROPHYLAXIS
     Dosage: ORAL
     Route: 048
  2. TACROLIMUS (TACROLIMUS) [Concomitant]
  3. ACYCLOVIR [Concomitant]

REACTIONS (1)
  - GRAFT VERSUS HOST DISEASE [None]
